FAERS Safety Report 5842459-9 (Version None)
Quarter: 2008Q3

REPORT INFORMATION
  Report Type: 
  Country: None (occurrence: None)
  Receive Date: 20080812
  Receipt Date: 20080806
  Transmission Date: 20090109
  Serious: Yes (Other)
  Sender: FDA-Public Use
  Company Number: US-GILEAD-2008-0017383

PATIENT
  Age: 38 Year
  Sex: Female
  Weight: 57.658 kg

DRUGS (14)
  1. VIREAD [Suspect]
     Indication: HIV INFECTION
     Route: 048
     Dates: start: 20050707
  2. ETRAVIRINE [Concomitant]
     Indication: HIV INFECTION
     Route: 048
     Dates: start: 20050707, end: 20060322
  3. FUZEON [Concomitant]
     Indication: HIV INFECTION
     Route: 058
     Dates: start: 20050707
  4. KALETRA [Concomitant]
     Indication: HIV INFECTION
     Route: 048
     Dates: start: 20050707
  5. DIMETICONE [Concomitant]
     Indication: FLATULENCE
  6. ACYCLOVIR [Concomitant]
     Indication: HERPES SIMPLEX
  7. CITALOPRAM HYDROBROMIDE [Concomitant]
     Indication: POST-TRAUMATIC STRESS DISORDER
  8. CALCIUM [Concomitant]
     Indication: SUPPLEMENTATION THERAPY
  9. TRAZODONE HCL [Concomitant]
     Indication: DEPRESSION
  10. METHADONE HYDROCHLORIDE [Concomitant]
     Indication: NEUROPATHY PERIPHERAL
  11. VITAMIN TAB [Concomitant]
     Indication: SUPPLEMENTATION THERAPY
  12. VITAMIN B COMPLEX CAP [Concomitant]
     Indication: SUPPLEMENTATION THERAPY
  13. NAPROXEN [Concomitant]
     Indication: MIGRAINE
  14. FLUCONAZOLE [Concomitant]
     Indication: CANDIDIASIS

REACTIONS (1)
  - ABORTION MISSED [None]
